FAERS Safety Report 5919653-1 (Version None)
Quarter: 2008Q3

REPORT INFORMATION
  Report Type: 
  Country: None (occurrence: None)
  Receive Date: 20080909
  Receipt Date: 20070917
  Transmission Date: 20090109
  Serious: Yes (Hospitalization)
  Sender: FDA-Public Use
  Company Number: 163-20785-07071524

PATIENT
  Age: 69 Year
  Sex: Male

DRUGS (10)
  1. THALOMID [Suspect]
     Indication: MULTIPLE MYELOMA
     Dosage: 100 MG, DAILY, ORAL
     Route: 048
     Dates: start: 20070321
  2. VELCADE [Suspect]
     Indication: MULTIPLE MYELOMA
     Dosage: INTRAVENOUS
     Route: 042
     Dates: start: 20070611, end: 20070625
  3. DEXAMETHASONE TAB [Concomitant]
  4. NEXIUM [Concomitant]
  5. FOSAMAX [Concomitant]
  6. CALCIUM WITH VITAMIN D (CALCIUM WITH VITAMIN D) [Concomitant]
  7. GENTEX HC [Concomitant]
  8. TRAVATAN (TRAVOPOST) [Concomitant]
  9. COUMADIN [Concomitant]
  10. VIAGRA [Concomitant]

REACTIONS (5)
  - ASTHENIA [None]
  - PLATELET COUNT DECREASED [None]
  - PNEUMONIA [None]
  - PYREXIA [None]
  - RENAL FAILURE ACUTE [None]
